FAERS Safety Report 9931643 (Version 1)
Quarter: 2014Q1

REPORT INFORMATION
  Report Type: Report from Study
  Country: JP (occurrence: JP)
  Receive Date: 20140228
  Receipt Date: 20140228
  Transmission Date: 20141002
  Serious: Yes (Hospitalization)
  Sender: FDA-Public Use
  Company Number: JP-AMGEN-JPNCT2014014346

PATIENT
  Age: 73 Year
  Sex: Female
  Weight: 73 kg

DRUGS (10)
  1. DARBEPOETIN ALFA [Suspect]
     Indication: NEPHROGENIC ANAEMIA
     Dosage: 120 MUG, Q2WK
     Route: 058
     Dates: start: 20110721, end: 20130314
  2. PRAVASTAN [Concomitant]
     Dosage: UNK
     Route: 048
  3. AMLODIPINE [Concomitant]
     Dosage: UNK
     Route: 048
  4. CARBADOGEN [Concomitant]
     Dosage: UNK
     Route: 048
  5. SALOBEL [Concomitant]
     Dosage: UNK
     Route: 048
  6. KREMEZIN [Concomitant]
     Indication: NEPHROSCLEROSIS
     Dosage: UNK
     Route: 048
  7. CALFINA [Concomitant]
     Dosage: UNK
     Route: 048
  8. TRANDOLAPRIL [Concomitant]
     Dosage: UNK
     Route: 048
  9. NATRIX [Concomitant]
     Dosage: UNK
     Route: 048
  10. SPIRONOLACTONE [Concomitant]
     Dosage: UNK
     Route: 048

REACTIONS (1)
  - Arteriovenous fistula occlusion [Not Recovered/Not Resolved]
